FAERS Safety Report 6853920-2 (Version None)
Quarter: 2010Q3

REPORT INFORMATION
  Report Type: 
  Country: None (occurrence: None)
  Receive Date: 20100717
  Receipt Date: 20080109
  Transmission Date: 20110219
  Serious: No
  Sender: FDA-Public Use
  Company Number: US-PFIZER INC-2007107878

PATIENT
  Sex: Female
  Weight: 70.31 kg

DRUGS (1)
  1. CHANTIX [Suspect]
     Indication: SMOKING CESSATION THERAPY
     Dates: start: 20071215

REACTIONS (6)
  - DIZZINESS [None]
  - DRY MOUTH [None]
  - FATIGUE [None]
  - HYPOAESTHESIA [None]
  - LETHARGY [None]
  - NAUSEA [None]
